FAERS Safety Report 21526828 (Version 1)
Quarter: 2022Q4

REPORT INFORMATION
  Report Type: Spontaneous
  Country: CN (occurrence: CN)
  Receive Date: 20221031
  Receipt Date: 20221031
  Transmission Date: 20230113
  Serious: Yes (Hospitalization)
  Sender: FDA-Public Use
  Company Number: CN-JNJFOC-20221043407

PATIENT
  Age: 72 Year
  Sex: Male
  Weight: 61 kg

DRUGS (2)
  1. ERLEADA [Suspect]
     Active Substance: APALUTAMIDE
     Indication: Prostate cancer
     Route: 048
     Dates: start: 20221007
  2. GOSERELIN [Suspect]
     Active Substance: GOSERELIN
     Indication: Prostate cancer
     Route: 058
     Dates: start: 20221007, end: 20221007

REACTIONS (3)
  - Dermatitis [Recovering/Resolving]
  - Colitis [Recovering/Resolving]
  - Cardiomyopathy acute [Recovering/Resolving]

NARRATIVE: CASE EVENT DATE: 20221017
